FAERS Safety Report 4407408-9 (Version None)
Quarter: 2004Q3

REPORT INFORMATION
  Report Type: 
  Country: None (occurrence: None)
  Receive Date: 20040726
  Receipt Date: 20040719
  Transmission Date: 20050211
  Serious: Yes (Other)
  Sender: FDA-Public Use
  Company Number: US-BRISTOL-MYERS SQUIBB COMPANY-12644548

PATIENT
  Age: 79 Year
  Sex: Male
  Weight: 65 kg

DRUGS (11)
  1. ERBITUX [Suspect]
     Indication: COLORECTAL CANCER
     Dosage: TREATMENT HELD
     Route: 042
  2. COUMADIN [Interacting]
     Indication: DEEP VEIN THROMBOSIS
     Dosage: TREATMENT HELD
  3. ALLEGRA [Concomitant]
  4. ATENOLOL [Concomitant]
  5. FLONASE [Concomitant]
  6. FOSAMAX [Concomitant]
  7. LEVOXYL [Concomitant]
  8. PERCOCET [Concomitant]
  9. PREVACID [Concomitant]
  10. EPOGEN [Concomitant]
  11. UNIRETIC [Concomitant]

REACTIONS (3)
  - DRUG INTERACTION [None]
  - ECCHYMOSIS [None]
  - INTERNATIONAL NORMALISED RATIO ABNORMAL [None]
